FAERS Safety Report 15843700 (Version 1)
Quarter: 2019Q1

REPORT INFORMATION
  Report Type: Spontaneous
  Country: JP (occurrence: US)
  Receive Date: 20190118
  Receipt Date: 20190118
  Transmission Date: 20190417
  Serious: No
  Sender: FDA-Public Use
  Company Number: JP-SUNOVION-2019SUN000122

PATIENT
  Sex: Male
  Weight: 78 kg

DRUGS (2)
  1. LATUDA [Suspect]
     Active Substance: LURASIDONE HYDROCHLORIDE
     Indication: DEPRESSION
     Dosage: 40 MG, QD
     Route: 048
     Dates: start: 20190108
  2. APRAZ [Concomitant]
     Active Substance: ALPRAZOLAM
     Dosage: UNK
     Route: 065
     Dates: start: 2006

REACTIONS (2)
  - Peripheral coldness [Not Recovered/Not Resolved]
  - Off label use [Not Recovered/Not Resolved]
